FAERS Safety Report 24327401 (Version 1)
Quarter: 2024Q3

REPORT INFORMATION
  Report Type: Spontaneous
  Country: SK (occurrence: SK)
  Receive Date: 20240917
  Receipt Date: 20240917
  Transmission Date: 20241017
  Serious: Yes (Other)
  Sender: RANBAXY
  Company Number: SK-SUN PHARMACEUTICAL INDUSTRIES LTD-2024R1-467456

PATIENT
  Age: 43 Year
  Sex: Female

DRUGS (3)
  1. PACLITAXEL [Suspect]
     Active Substance: PACLITAXEL
     Indication: Ovarian cancer
     Dosage: UNK,6 CYCLES OF CHEMOTHERAPY
     Route: 065
     Dates: start: 20140922, end: 20150127
  2. CARBOPLATIN [Suspect]
     Active Substance: CARBOPLATIN
     Indication: Ovarian cancer
     Dosage: UNK, 6 CYCLES OF CHEMOTHERAPY
     Route: 065
     Dates: start: 20140922, end: 20150127
  3. BEVACIZUMAB [Concomitant]
     Active Substance: BEVACIZUMAB
     Indication: Ovarian cancer
     Dosage: UNK, 6 CYCLES OF CHEMOTHERAPY
     Route: 065
     Dates: start: 20140922, end: 20150127

REACTIONS (1)
  - Therapy partial responder [Unknown]
